FAERS Safety Report 14144845 (Version 2)
Quarter: 2018Q1

REPORT INFORMATION
  Report Type: Spontaneous
  Country: US (occurrence: US)
  Receive Date: 20171031
  Receipt Date: 20180218
  Transmission Date: 20180508
  Serious: No
  Sender: FDA-Public Use
  Company Number: US-SHIRE-US201726618

PATIENT
  Age: 62 Year
  Sex: Female

DRUGS (1)
  1. GAMMAGARD LIQUID [Suspect]
     Active Substance: HUMAN IMMUNOGLOBULIN G
     Indication: MYASTHENIA GRAVIS
     Dosage: 100 G, EVERY 3 WK
     Route: 042
     Dates: start: 20160929

REACTIONS (2)
  - Malaise [Recovered/Resolved]
  - Drug ineffective [Unknown]

NARRATIVE: CASE EVENT DATE: 20170831
